FAERS Safety Report 16420782 (Version 1)
Quarter: 2019Q3

REPORT INFORMATION
  Report Type: Spontaneous
  Country: MA (occurrence: MA)
  Receive Date: 20190611
  Receipt Date: 20190611
  Transmission Date: 20191004
  Serious: Yes (Other)
  Sender: FDA-Public Use
  Company Number: None

PATIENT
  Age: 21 Year
  Sex: Female
  Weight: 70 kg

DRUGS (2)
  1. MAGNESIUM [Concomitant]
     Active Substance: MAGNESIUM
  2. LUCENTIS [Suspect]
     Active Substance: RANIBIZUMAB
     Indication: MACULAR DEGENERATION
     Dosage: ?          OTHER FREQUENCY:ONCE A MONTH;?
     Route: 047
     Dates: start: 20180218, end: 20190225

REACTIONS (4)
  - Eye pain [None]
  - Dizziness [None]
  - Macular degeneration [None]
  - Headache [None]

NARRATIVE: CASE EVENT DATE: 20190304
